FAERS Safety Report 7655256-9 (Version None)
Quarter: 2011Q3

REPORT INFORMATION
  Report Type: 
  Country: None (occurrence: None)
  Receive Date: 20110804
  Receipt Date: 20110727
  Transmission Date: 20111222
  Serious: Yes (Other)
  Sender: FDA-Public Use
  Company Number: US-JNJFOC-20100100356

PATIENT
  Age: 82 Year
  Sex: Female
  Weight: 77.11 kg

DRUGS (13)
  1. METOPROLOL TARTRATE [Concomitant]
     Indication: HEART RATE IRREGULAR
     Route: 048
     Dates: start: 20091205
  2. METOPROLOL TARTRATE [Concomitant]
     Route: 048
     Dates: start: 20091205
  3. LUMIGAN [Concomitant]
     Indication: GLAUCOMA
     Dosage: IN EACH EYE
     Route: 031
     Dates: start: 20091201
  4. TYLENOL-500 [Suspect]
     Indication: ARTHRALGIA
     Route: 048
     Dates: start: 20091201, end: 20091229
  5. LEVOTHROID [Concomitant]
     Indication: THYROID DISORDER
     Route: 048
     Dates: start: 19890101
  6. ENTERIC ASPIRIN [Concomitant]
     Indication: CEREBROVASCULAR ACCIDENT PROPHYLAXIS
     Route: 048
     Dates: start: 20080101
  7. TYLENOL-500 [Suspect]
     Route: 048
  8. ARIMIDEX [Concomitant]
     Indication: NEOPLASM MALIGNANT
     Route: 048
     Dates: start: 20080101
  9. COZAAR [Concomitant]
     Indication: BLOOD PRESSURE ABNORMAL
     Route: 048
     Dates: start: 20080101
  10. WARFARIN SODIUM [Concomitant]
     Indication: ANTICOAGULANT THERAPY
     Route: 048
     Dates: start: 20080101
  11. PREDNISOLONE [Concomitant]
     Indication: GLAUCOMA
     Dosage: IN LEFT EYE
     Route: 031
     Dates: start: 20091201
  12. BRIMONIDINE TARTRATE [Concomitant]
     Indication: GLAUCOMA
     Dosage: IN EACH EYE
     Route: 031
     Dates: start: 20080101
  13. COZAAR [Concomitant]
     Route: 048
     Dates: start: 20080101

REACTIONS (7)
  - HYPERSOMNIA [None]
  - PARAESTHESIA [None]
  - ASTHENIA [None]
  - PRODUCT QUALITY ISSUE [None]
  - MUSCULAR WEAKNESS [None]
  - DIZZINESS [None]
  - BLOOD PRESSURE DECREASED [None]
